FAERS Safety Report 25682602 (Version 2)
Quarter: 2025Q3

REPORT INFORMATION
  Report Type: Spontaneous
  Country: US (occurrence: US)
  Receive Date: 20250814
  Receipt Date: 20250905
  Transmission Date: 20251020
  Serious: No
  Sender: PFIZER
  Company Number: US-PFIZER INC-202500138219

PATIENT
  Age: 39 Year
  Sex: Male

DRUGS (2)
  1. ADCETRIS [Suspect]
     Active Substance: BRENTUXIMAB VEDOTIN
     Indication: Hodgkin^s disease
     Dosage: 180 MG INFUSION, EVERY 21 DAYS
     Route: 041
  2. OPDIVO [Concomitant]
     Active Substance: NIVOLUMAB
     Indication: Hodgkin^s disease

REACTIONS (3)
  - Off label use [Unknown]
  - Product use issue [Unknown]
  - Product use issue [Unknown]
